FAERS Safety Report 4443661-3 (Version None)
Quarter: 2004Q3

REPORT INFORMATION
  Report Type: 
  Country: None (occurrence: None)
  Receive Date: 20040908
  Receipt Date: 20040720
  Transmission Date: 20050211
  Serious: Yes (Hospitalization)
  Sender: FDA-Public Use
  Company Number: JP-GLAXOSMITHKLINE-B0340349A

PATIENT
  Age: 73 Year
  Sex: Female
  Weight: 47 kg

DRUGS (5)
  1. ZANTAC [Suspect]
     Indication: PREMEDICATION
     Dosage: 50MG PER DAY
     Route: 042
     Dates: start: 20040220, end: 20040625
  2. KYTRIL [Suspect]
     Indication: PREMEDICATION
     Dosage: 3MG PER DAY
     Route: 042
     Dates: start: 20040220, end: 20040625
  3. DECADRON [Suspect]
     Indication: PREMEDICATION
     Dosage: 12MG PER DAY
     Route: 042
     Dates: start: 20040220, end: 20040625
  4. RESTAMIN [Concomitant]
     Indication: PREMEDICATION
     Route: 048
     Dates: start: 20040220, end: 20040625
  5. TAXOL [Concomitant]
     Indication: BREAST CANCER
     Dosage: 100MG PER DAY
     Route: 042
     Dates: start: 20040220, end: 20040618

REACTIONS (6)
  - ANAPHYLACTIC SHOCK [None]
  - COUGH [None]
  - DEPRESSED LEVEL OF CONSCIOUSNESS [None]
  - FEELING ABNORMAL [None]
  - HOT FLUSH [None]
  - VOMITING [None]
